FAERS Safety Report 8981792 (Version 2)
Quarter: 2013Q4

REPORT INFORMATION
  Report Type: Spontaneous
  Country: IT (occurrence: IT)
  Receive Date: 20121223
  Receipt Date: 20131129
  Transmission Date: 20140711
  Serious: Yes (Other)
  Sender: FDA-Public Use
  Company Number: PHHY2012IT111102

PATIENT
  Age: 72 Year
  Sex: Male

DRUGS (2)
  1. ZOMETA [Suspect]
     Indication: PLASMA CELL MYELOMA
     Dosage: 4 MG, MONTHLY
     Dates: start: 20090301, end: 20100601
  2. ZOMETA [Suspect]
     Dosage: 4 MG, MONTHLY

REACTIONS (1)
  - Osteonecrosis of jaw [Recovering/Resolving]
